FAERS Safety Report 18870225 (Version 2)
Quarter: 2022Q1

REPORT INFORMATION
  Report Type: Spontaneous
  Country: AU (occurrence: AU)
  Receive Date: 20210210
  Receipt Date: 20220128
  Transmission Date: 20220424
  Serious: Yes (Hospitalization, Other)
  Sender: FDA-Public Use
  Company Number: AU-DSJP-DSU-2014-101823

PATIENT
  Age: 59 Year
  Sex: Female

DRUGS (2)
  1. JANUVIA [Suspect]
     Active Substance: SITAGLIPTIN PHOSPHATE
     Indication: Product used for unknown indication
     Dosage: 100 MG, QD
  2. HYDROCHLOROTHIAZIDE\OLMESARTAN MEDOXOMIL [Suspect]
     Active Substance: HYDROCHLOROTHIAZIDE\OLMESARTAN MEDOXOMIL
     Indication: Product used for unknown indication
     Dosage: 40/25 MG, QD
     Route: 048

REACTIONS (3)
  - Myocardial infarction [Unknown]
  - Stent placement [Unknown]
  - Atrioventricular block [Unknown]

NARRATIVE: CASE EVENT DATE: 20120501
